FAERS Safety Report 4551659-X (Version None)
Quarter: 2005Q1

REPORT INFORMATION
  Report Type: 
  Country: None (occurrence: None)
  Receive Date: 20050110
  Receipt Date: 20041228
  Transmission Date: 20050727
  Serious: Yes (Hospitalization)
  Sender: FDA-Public Use
  Company Number: 2004104921

PATIENT
  Age: 35 Year
  Sex: Male
  Weight: 70 kg

DRUGS (8)
  1. AZITHROMYCIN [Suspect]
     Indication: PHARYNGITIS
     Dosage: 500 MG (500 MG, 1 IN 1 D), ORAL
     Route: 048
     Dates: start: 20041125
  2. CEFCAPENE PIVOXIL HYDROCHLORIDE [Suspect]
     Indication: NASOPHARYNGITIS
     Dosage: 300 MG (100 MG , 3 IN 1 D), ORAL
     Route: 048
     Dates: start: 20041122, end: 20041124
  3. TIARAMIDE HYDROCHLORIDE [Concomitant]
  4. PREDNISOLONE [Concomitant]
  5. IBUPROFEN [Suspect]
     Indication: NASOPHARYNGITIS
     Dosage: ORAL
     Route: 048
     Dates: start: 20041122, end: 20041124
  6. TIARAMIDE HYDROCHLORIDE [Concomitant]
  7. PREDNISOLONE [Concomitant]
  8. AZELASTINE [Concomitant]

REACTIONS (6)
  - CONJUNCTIVAL HYPERAEMIA [None]
  - EXANTHEM [None]
  - PYREXIA [None]
  - RASH [None]
  - TONSILLITIS [None]
  - VIRAL INFECTION [None]
